FAERS Safety Report 19874052 (Version 3)
Quarter: 2021Q4

REPORT INFORMATION
  Report Type: Spontaneous
  Country: GB (occurrence: GB)
  Receive Date: 20210922
  Receipt Date: 20211013
  Transmission Date: 20220303
  Serious: Yes (Other)
  Sender: FDA-Public Use
  Company Number: GB-TAKEDA-2021TUS058938

PATIENT
  Age: 73 Year
  Sex: Female
  Weight: 50.2 kg

DRUGS (22)
  1. BORTEZOMIB [Suspect]
     Active Substance: BORTEZOMIB
     Indication: Plasma cell leukaemia
     Dosage: 1.3 MILLIGRAM/SQ. METER
     Route: 058
     Dates: start: 20171103, end: 20171103
  2. BORTEZOMIB [Suspect]
     Active Substance: BORTEZOMIB
     Dosage: 1.3 MILLIGRAM/SQ. METER
     Route: 058
     Dates: start: 20171106, end: 20171106
  3. BORTEZOMIB [Suspect]
     Active Substance: BORTEZOMIB
     Dosage: 1.3 MILLIGRAM/SQ. METER
     Route: 058
     Dates: start: 20171110, end: 20171110
  4. BORTEZOMIB [Suspect]
     Active Substance: BORTEZOMIB
     Dosage: UNK
     Route: 058
  5. FENTANYL [Suspect]
     Active Substance: FENTANYL
     Indication: Product used for unknown indication
     Dosage: 12 MICROGRAM
     Route: 062
     Dates: start: 20171108
  6. DEXAMETHASONE [Suspect]
     Active Substance: DEXAMETHASONE
     Indication: Product used for unknown indication
     Dosage: 20 MILLIGRAM, QD
     Route: 065
     Dates: start: 20171102, end: 20171106
  7. ALLOPURINOL [Suspect]
     Active Substance: ALLOPURINOL
     Indication: Product used for unknown indication
     Dosage: 30 MILLIGRAM, QD
     Route: 065
     Dates: start: 20171104
  8. ALLOPURINOL [Suspect]
     Active Substance: ALLOPURINOL
     Dosage: 300 MILLIGRAM
     Route: 065
     Dates: start: 20171104
  9. ALLOPURINOL [Suspect]
     Active Substance: ALLOPURINOL
     Dosage: 300 MILLIGRAM, QD
     Route: 065
     Dates: start: 20171120
  10. MELPHALAN [Suspect]
     Active Substance: MELPHALAN
     Indication: Plasma cell leukaemia
     Dosage: 14 MILLIGRAM, QD
     Route: 065
     Dates: start: 20171103, end: 20171106
  11. MELPHALAN [Suspect]
     Active Substance: MELPHALAN
     Dosage: UNK
     Route: 065
  12. MELPHALAN [Suspect]
     Active Substance: MELPHALAN
     Dosage: 14 MILLIGRAM, QD
     Route: 065
     Dates: start: 20171107, end: 20171110
  13. PREDNISONE [Suspect]
     Active Substance: PREDNISONE
     Indication: Plasma cell leukaemia
     Dosage: 70 MILLIGRAM, QD
     Route: 065
     Dates: start: 20171103, end: 20171106
  14. PREDNISONE [Suspect]
     Active Substance: PREDNISONE
     Dosage: UNK
     Route: 065
  15. SODIUM CHLORIDE [Suspect]
     Active Substance: SODIUM CHLORIDE
     Indication: Medication dilution
     Dosage: UNK
     Route: 065
     Dates: start: 20171103, end: 20171103
  16. SODIUM CHLORIDE [Suspect]
     Active Substance: SODIUM CHLORIDE
     Dosage: UNK
     Route: 065
     Dates: start: 20171106, end: 20171106
  17. SODIUM CHLORIDE [Suspect]
     Active Substance: SODIUM CHLORIDE
     Dosage: UNK
     Route: 065
     Dates: start: 20171110, end: 20171110
  18. SERTRALINE [Concomitant]
     Active Substance: SERTRALINE HYDROCHLORIDE
     Indication: Product used for unknown indication
     Dosage: 50 MILLIGRAM, QD
     Route: 065
  19. BENDROFLUMETHIAZIDE [Concomitant]
     Active Substance: BENDROFLUMETHIAZIDE
     Indication: Product used for unknown indication
     Dosage: 2.5 MILLIGRAM, QD
     Route: 065
  20. RAMIPRIL [Concomitant]
     Active Substance: RAMIPRIL
     Indication: Product used for unknown indication
     Dosage: 10 MILLIGRAM, QD
     Route: 065
  21. OMEPRAZOLE [Concomitant]
     Active Substance: OMEPRAZOLE
     Indication: Product used for unknown indication
     Dosage: 20 MILLIGRAM, QD
     Route: 065
  22. METOCLOPRAMIDE [Concomitant]
     Active Substance: METOCLOPRAMIDE
     Indication: Product used for unknown indication
     Dosage: 10 MILLIGRAM
     Route: 065

REACTIONS (8)
  - Hallucination [Recovered/Resolved]
  - Disorientation [Recovered/Resolved]
  - Disturbance in social behaviour [Recovered/Resolved]
  - Abnormal behaviour [Recovered/Resolved]
  - Emotional distress [Not Recovered/Not Resolved]
  - Agitation [Recovered/Resolved]
  - Paranoia [Recovered/Resolved]
  - Confusional state [Not Recovered/Not Resolved]

NARRATIVE: CASE EVENT DATE: 20171111
